FAERS Safety Report 8822116 (Version 3)
Quarter: 2012Q4

REPORT INFORMATION
  Report Type: Report from Study
  Country: RU (occurrence: RU)
  Receive Date: 20121003
  Receipt Date: 20121121
  Transmission Date: 20130627
  Serious: Yes (Other)
  Sender: FDA-Public Use
  Company Number: RU-MERCK-1209RUS011324

PATIENT
  Age: 31 Year
  Sex: Male
  Weight: 70 kg

DRUGS (9)
  1. BLINDED BOCEPREVIR [Suspect]
     Indication: CHRONIC HEPATITIS C
     Dosage: UNK
     Dates: start: 20120403, end: 20120917
  2. BLINDED PEGINTERFERON ALFA-2B [Suspect]
     Indication: CHRONIC HEPATITIS C
     Dosage: UNK
     Dates: start: 20120403, end: 20120917
  3. BLINDED PLACEBO [Suspect]
     Indication: CHRONIC HEPATITIS C
     Dosage: UNK
     Dates: start: 20120403, end: 20120917
  4. BLINDED POST TRIAL THERAPY [Suspect]
     Indication: CHRONIC HEPATITIS C
     Dosage: UNK
     Dates: start: 20120403, end: 20120917
  5. BLINDED PRE TRIAL THERAPY [Suspect]
     Indication: CHRONIC HEPATITIS C
     Dosage: UNK
     Dates: start: 20120403, end: 20120917
  6. BLINDED RIBAVIRIN [Suspect]
     Indication: CHRONIC HEPATITIS C
     Dosage: UNK
     Dates: start: 20120403, end: 20120917
  7. PEG-INTRON [Suspect]
     Indication: CHRONIC HEPATITIS C
     Dosage: 120 Microgram, 0.5 ml qw
     Route: 058
     Dates: start: 20120306, end: 20120730
  8. PEG-INTRON [Suspect]
     Dosage: 120 Microgram, 0.3 ml, qw
     Route: 058
     Dates: start: 20120731, end: 20120911
  9. RIBAVIRIN [Suspect]
     Indication: CHRONIC HEPATITIS C
     Dosage: 1000 mg, bid: 400 mg morning, 600 mg evening
     Route: 048
     Dates: start: 20120306, end: 20120917

REACTIONS (1)
  - Neutropenia [Recovered/Resolved]
